FAERS Safety Report 25229601 (Version 3)
Quarter: 2025Q4

REPORT INFORMATION
  Report Type: Report from Study
  Country: EU (occurrence: EU)
  Receive Date: 20250423
  Receipt Date: 20251106
  Transmission Date: 20260118
  Serious: Yes (Death, Other)
  Sender: TAKEDA
  Company Number: EU-TAKEDA-2025TUS016255

PATIENT
  Sex: Male

DRUGS (1)
  1. FRUQUINTINIB [Suspect]
     Active Substance: FRUQUINTINIB
     Indication: Colorectal cancer metastatic
     Dosage: 3 MILLIGRAM
     Dates: start: 20250204, end: 20250417

REACTIONS (4)
  - Colorectal cancer metastatic [Fatal]
  - Nasal inflammation [Recovered/Resolved]
  - Insomnia [Recovered/Resolved]
  - Asthenia [Not Recovered/Not Resolved]
